FAERS Safety Report 9215240 (Version 1)
Quarter: 2013Q2

REPORT INFORMATION
  Report Type: Spontaneous
  Country: FR (occurrence: FR)
  Receive Date: 20130405
  Receipt Date: 20130405
  Transmission Date: 20140414
  Serious: Yes (Death, Hospitalization)
  Sender: FDA-Public Use
  Company Number: FR-BAXTER-2013BAX012103

PATIENT
  Age: 46 Year
  Sex: Male

DRUGS (8)
  1. ENDOXAN 2000 MG, LYOPHILISAT POUR SOLUTION INJECTABLE [Suspect]
     Indication: PRODUCT USED FOR UNKNOWN INDICATION
     Route: 042
     Dates: start: 20121008, end: 20121106
  2. ADRIBLASTINE [Concomitant]
     Indication: PRODUCT USED FOR UNKNOWN INDICATION
     Route: 042
     Dates: start: 20121106, end: 20121106
  3. ONCOVIN [Concomitant]
     Indication: PRODUCT USED FOR UNKNOWN INDICATION
     Route: 042
     Dates: start: 20121106, end: 20121106
  4. SOLUMEDROL [Concomitant]
     Indication: PRODUCT USED FOR UNKNOWN INDICATION
     Route: 042
     Dates: start: 20121106, end: 20121106
  5. ENDOXAN 100 MG, POUDRE POUR SOLUTION INJECTABLE [Concomitant]
     Indication: BONE MARROW CONDITIONING REGIMEN
     Route: 065
     Dates: start: 2009
  6. PREVISCAN [Concomitant]
     Indication: THROMBOSIS
     Route: 065
  7. MABTHERA [Concomitant]
     Indication: PRODUCT USED FOR UNKNOWN INDICATION
     Route: 065
     Dates: start: 201004, end: 201106
  8. MABTHERA [Concomitant]
     Route: 065
     Dates: start: 20120627

REACTIONS (2)
  - Death [Fatal]
  - Cystitis haemorrhagic [Unknown]
